FAERS Safety Report 4829859-0 (Version None)
Quarter: 2005Q4

REPORT INFORMATION
  Report Type: 
  Country: None (occurrence: None)
  Receive Date: 20051115
  Receipt Date: 20051104
  Transmission Date: 20060501
  Serious: Yes (Hospitalization, Other)
  Sender: FDA-Public Use
  Company Number: 2005129685

PATIENT
  Age: 33 Year
  Sex: Female
  Weight: 63.5036 kg

DRUGS (1)
  1. DEPO-PROVERA [Suspect]
     Indication: CONTRACEPTION
     Dosage: FIRST INJECTION/EVERY 3 MONTHS, INTRAMUSCULAR
     Route: 030
     Dates: start: 19920101, end: 19920101

REACTIONS (12)
  - ACNE [None]
  - ASTHMA [None]
  - DEPRESSION [None]
  - DIZZINESS [None]
  - DRUG INEFFECTIVE [None]
  - INFERTILITY FEMALE [None]
  - MENTAL DISORDER [None]
  - MIGRAINE [None]
  - MOOD SWINGS [None]
  - UTERINE DISORDER [None]
  - UTERINE LEIOMYOMA [None]
  - WEIGHT INCREASED [None]
